FAERS Safety Report 18230763 (Version 5)
Quarter: 2021Q1

REPORT INFORMATION
  Report Type: Spontaneous
  Country: DE (occurrence: DE)
  Receive Date: 20200904
  Receipt Date: 20210120
  Transmission Date: 20210419
  Serious: Yes (Hospitalization, Other)
  Sender: FDA-Public Use
  Company Number: DE-009507513-2008DEU012702

PATIENT
  Age: 66 Year
  Sex: Male
  Weight: 140 kg

DRUGS (13)
  1. FINASTERIDE. [Interacting]
     Active Substance: FINASTERIDE
     Dosage: 5 MILLIGRAM, QD, EVERY 24 HOURS
  2. VALSARTAN. [Interacting]
     Active Substance: VALSARTAN
     Dosage: 160 MILLIGRAM, Q24H
  3. MOXONIDINE [Interacting]
     Active Substance: MOXONIDINE
     Indication: PRODUCT USED FOR UNKNOWN INDICATION
     Dosage: 0.3 MILLIGRAM, QD (0.3 MG, Q24H) 1?0?0?0
     Route: 048
  4. MOXONIDINE [Interacting]
     Active Substance: MOXONIDINE
     Dosage: 0.3 MILLIGRAM, QD
  5. FINASTERIDE. [Suspect]
     Active Substance: FINASTERIDE
     Indication: PRODUCT USED FOR UNKNOWN INDICATION
     Dosage: 5 MILLIGRAM, QD (5 MG, Q24H) 0?0?1?0
     Route: 048
  6. DULOXETINE HYDROCHLORIDE. [Interacting]
     Active Substance: DULOXETINE HYDROCHLORIDE
     Indication: PRODUCT USED FOR UNKNOWN INDICATION
     Dosage: 30 MILLIGRAM, Q12H (1?0?1?0)
     Route: 048
  7. BISOPROLOL [Interacting]
     Active Substance: BISOPROLOL
     Indication: PRODUCT USED FOR UNKNOWN INDICATION
     Dosage: 5 MILLIGRAM, QD (5 MG, Q24H), 1?0?0?0
     Route: 048
  8. BISOPROLOL [Interacting]
     Active Substance: BISOPROLOL
     Dosage: 5 MILLIGRAM, QD (EVERY 24 HOURS)
  9. AMLODIPINE [Interacting]
     Active Substance: AMLODIPINE BESYLATE
     Indication: PRODUCT USED FOR UNKNOWN INDICATION
     Dosage: 10 MILLIGRAM, QD (1?0?0?0), TABLET
     Route: 048
  10. TAMSULOSIN HYDROCHLORIDE. [Interacting]
     Active Substance: TAMSULOSIN HYDROCHLORIDE
     Indication: PRODUCT USED FOR UNKNOWN INDICATION
     Dosage: 0.4 MILLIGRAM, QD (0.4 MG, Q24H) ONCE DAILY (0?0?1?0)
     Route: 048
  11. VALSARTAN. [Interacting]
     Active Substance: VALSARTAN
     Indication: PRODUCT USED FOR UNKNOWN INDICATION
     Dosage: 160 MILLIGRAM, QD (160 MG, Q24H)
     Route: 048
  12. HYDROCHLOROTHIAZIDE. [Interacting]
     Active Substance: HYDROCHLOROTHIAZIDE
     Indication: PRODUCT USED FOR UNKNOWN INDICATION
     Dosage: 12.5 MILLIGRAM, QD (12.5 MG, Q24H) ONCE DAILY (1?0?0?0)
     Route: 048
  13. TAMSULOSIN HYDROCHLORIDE. [Interacting]
     Active Substance: TAMSULOSIN HYDROCHLORIDE
     Dosage: 0.4 MILLIGRAM, Q24H (REGIMEN #2 EVERY 24 HOURS)

REACTIONS (8)
  - Gait disturbance [Recovering/Resolving]
  - Feeling hot [Recovering/Resolving]
  - Vertigo [Recovering/Resolving]
  - Dizziness [Recovering/Resolving]
  - Hypotension [Recovering/Resolving]
  - Renal impairment [Recovering/Resolving]
  - Labelled drug-drug interaction medication error [Unknown]
  - General physical health deterioration [Recovering/Resolving]
